FAERS Safety Report 8407334-4 (Version None)
Quarter: 2012Q2

REPORT INFORMATION
  Report Type: 
  Country: None (occurrence: None)
  Receive Date: 20120604
  Receipt Date: 20120521
  Transmission Date: 20120825
  Serious: Yes (Other)
  Sender: FDA-Public Use
  Company Number: GB-ROCHE-1073767

PATIENT

DRUGS (3)
  1. COPEGUS [Suspect]
     Indication: HEPATITIS C
     Route: 065
  2. INTERFERON ALFA [Suspect]
     Indication: HEPATITIS C
     Route: 065
  3. PEGASYS [Suspect]
     Indication: HEPATITIS C
     Route: 065

REACTIONS (9)
  - LACRIMATION DECREASED [None]
  - BLINDNESS [None]
  - CHEST PAIN [None]
  - VITREOUS OPACITIES [None]
  - DEPRESSION [None]
  - EPISTAXIS [None]
  - EYE DISORDER [None]
  - ANAEMIA [None]
  - NASAL SEPTUM DEVIATION [None]
